FAERS Safety Report 21047384 (Version 1)
Quarter: 2022Q3

REPORT INFORMATION
  Report Type: Spontaneous
  Country: US (occurrence: None)
  Receive Date: 20220705
  Receipt Date: 20220705
  Transmission Date: 20221027
  Serious: Yes (Disabling)
  Sender: FDA-Public Use
  Company Number: None

PATIENT
  Age: 44 Year
  Sex: Female
  Weight: 94.5 kg

DRUGS (3)
  1. MOUNJARO [Suspect]
     Active Substance: TIRZEPATIDE
     Indication: Obesity
     Dosage: OTHER QUANTITY : 1 INJECTION(S);?OTHER ROUTE : INJECTION;?
     Route: 050
     Dates: start: 20220627, end: 20220705
  2. LUPRON [Concomitant]
     Active Substance: LEUPROLIDE ACETATE
  3. EXEMESTANE [Concomitant]
     Active Substance: EXEMESTANE

REACTIONS (6)
  - Pain in extremity [None]
  - Arthralgia [None]
  - Gait inability [None]
  - Back pain [None]
  - Paraesthesia [None]
  - Hypoaesthesia [None]

NARRATIVE: CASE EVENT DATE: 20220704
